FAERS Safety Report 10475178 (Version 1)
Quarter: 2014Q3

REPORT INFORMATION
  Report Type: Spontaneous
  Country: US (occurrence: None)
  Receive Date: 20140924
  Receipt Date: 20140924
  Transmission Date: 20150326
  Serious: Yes (Other)
  Sender: FDA-Public Use
  Company Number: None

PATIENT
  Sex: Female
  Weight: 63.05 kg

DRUGS (1)
  1. LEVOTHYROXINE SODIUM. [Suspect]
     Active Substance: LEVOTHYROXINE SODIUM
     Indication: HYPOTHYROIDISM
     Dosage: PATIENT RESPONDS WELL TO BRAND NAME SYNTHROID.
     Dates: start: 20060821, end: 20130619

REACTIONS (2)
  - Asthenia [None]
  - Insomnia [None]

NARRATIVE: CASE EVENT DATE: 2005
